FAERS Safety Report 4864601-9 (Version None)
Quarter: 2005Q4

REPORT INFORMATION
  Report Type: 
  Country: None (occurrence: None)
  Receive Date: 20051222
  Receipt Date: 20051201
  Transmission Date: 20060501
  Serious: Yes (Other)
  Sender: FDA-Public Use
  Company Number: PHBS2005JP18018

PATIENT
  Age: 81 Year
  Sex: Male

DRUGS (2)
  1. LAMISIL [Suspect]
     Indication: NAIL TINEA
     Dosage: 125 MG/D
     Route: 048
     Dates: start: 20051108, end: 20051123
  2. GLORIAMIN [Concomitant]
     Route: 048
     Dates: start: 20051108, end: 20051123

REACTIONS (2)
  - HAEMORRHAGE SUBCUTANEOUS [None]
  - PANCYTOPENIA [None]
